FAERS Safety Report 9164572 (Version 1)
Quarter: 2013Q1

REPORT INFORMATION
  Report Type: Spontaneous
  Country: AR (occurrence: AR)
  Receive Date: 20130315
  Receipt Date: 20130315
  Transmission Date: 20140127
  Serious: Yes (Death, Hospitalization)
  Sender: FDA-Public Use
  Company Number: PHHY2013AR025220

PATIENT
  Sex: Male

DRUGS (1)
  1. EXELON [Suspect]
     Indication: SPEECH DISORDER
     Dosage: 4.5 MG, 1/DAY
     Route: 048

REACTIONS (2)
  - Cardio-respiratory arrest [Fatal]
  - Fall [Unknown]
